FAERS Safety Report 23500449 (Version 1)
Quarter: 2024Q1

REPORT INFORMATION
  Report Type: Spontaneous
  Country: AU (occurrence: AU)
  Receive Date: 20240208
  Receipt Date: 20240208
  Transmission Date: 20240410
  Serious: Yes (Hospitalization, Other)
  Sender: FDA-Public Use
  Company Number: AU-AMGEN-AUSSP2024022502

PATIENT
  Sex: Female

DRUGS (1)
  1. PROLIA [Suspect]
     Active Substance: DENOSUMAB
     Indication: Osteoporosis
     Dosage: UNK
     Route: 065

REACTIONS (13)
  - Thermal burn [Recovering/Resolving]
  - Blindness [Not Recovered/Not Resolved]
  - Coeliac disease [Unknown]
  - Cataract [Unknown]
  - Nerve injury [Unknown]
  - Skin swelling [Not Recovered/Not Resolved]
  - Ulcer [Unknown]
  - Skin exfoliation [Unknown]
  - Pain in jaw [Unknown]
  - Rhinitis [Unknown]
  - Osteoarthritis [Unknown]
  - Headache [Unknown]
  - Swelling face [Unknown]

NARRATIVE: CASE EVENT DATE: 20230101
